FAERS Safety Report 25130927 (Version 1)
Quarter: 2025Q1

REPORT INFORMATION
  Report Type: Spontaneous
  Country: US (occurrence: US)
  Receive Date: 20250327
  Receipt Date: 20250327
  Transmission Date: 20250408
  Serious: No
  Sender: IPSEN BIOPHARMACEUTICALS, INC.
  Company Number: US-IPSEN Group, Research and Development-2025-06760

PATIENT
  Sex: Female
  Weight: 112.98 kg

DRUGS (14)
  1. IQIRVO [Suspect]
     Active Substance: ELAFIBRANOR
     Indication: Primary biliary cholangitis
     Route: 048
  2. GABAPENTIN [Concomitant]
     Active Substance: GABAPENTIN
  3. LASIX [Concomitant]
     Active Substance: FUROSEMIDE
  4. TUMS [Concomitant]
     Active Substance: CALCIUM CARBONATE
  5. PLAQUENIL [Concomitant]
     Active Substance: HYDROXYCHLOROQUINE SULFATE
  6. PROTONIX [Concomitant]
     Active Substance: PANTOPRAZOLE SODIUM
  7. FLAXSEED [Concomitant]
     Active Substance: FLAX SEED
  8. LEXAPRO [Concomitant]
     Active Substance: ESCITALOPRAM OXALATE
  9. MAGNESIUM [Concomitant]
     Active Substance: MAGNESIUM
  10. AZO URINARY TRACT DEFENSE [Concomitant]
  11. CALCITRIOL [Concomitant]
     Active Substance: CALCITRIOL
  12. SYNTHROID [Concomitant]
     Active Substance: LEVOTHYROXINE SODIUM
  13. URSODIOL [Concomitant]
     Active Substance: URSODIOL
  14. CARDIZEM CD [Concomitant]
     Active Substance: DILTIAZEM HYDROCHLORIDE
     Dosage: SR

REACTIONS (2)
  - Nausea [Unknown]
  - Headache [Unknown]
